FAERS Safety Report 16705468 (Version 1)
Quarter: 2019Q3

REPORT INFORMATION
  Report Type: Spontaneous
  Country: US (occurrence: US)
  Receive Date: 20190815
  Receipt Date: 20190815
  Transmission Date: 20191004
  Serious: Yes (Other)
  Sender: FDA-Public Use
  Company Number: US-009507513-1908USA003943

PATIENT
  Sex: Male

DRUGS (1)
  1. TEMODAR [Suspect]
     Active Substance: TEMOZOLOMIDE
     Indication: BRAIN NEOPLASM MALIGNANT
     Dosage: DOSE OF TEMODAR WAS 170% LARGER THAN THE RECOMMENDED DOSE

REACTIONS (4)
  - Overdose [Unknown]
  - Nausea [Unknown]
  - Neuropathy peripheral [Unknown]
  - Headache [Unknown]
